FAERS Safety Report 25886450 (Version 1)
Quarter: 2025Q4

REPORT INFORMATION
  Report Type: Spontaneous
  Country: US (occurrence: None)
  Receive Date: 20251004
  Receipt Date: 20251004
  Transmission Date: 20260118
  Serious: No
  Sender: FDA-CTU
  Company Number: None

PATIENT
  Age: 18 Year
  Sex: Female

DRUGS (1)
  1. AMOXICILLIN\CLAVULANIC ACID [Suspect]
     Active Substance: AMOXICILLIN\CLAVULANIC ACID
     Dosage: FREQUENCY : TWICE A DAY;?
     Route: 049
     Dates: start: 20251002, end: 20251004

REACTIONS (2)
  - Rash pruritic [None]
  - Drug hypersensitivity [None]

NARRATIVE: CASE EVENT DATE: 20251003
